FAERS Safety Report 9280227 (Version 2)
Quarter: 2013Q2

REPORT INFORMATION
  Report Type: Report from Study
  Country: BD (occurrence: BD)
  Receive Date: 20130509
  Receipt Date: 20130513
  Transmission Date: 20140414
  Serious: Yes (Death)
  Sender: FDA-Public Use
  Company Number: PHHY2013BD045520

PATIENT
  Age: 65 Year
  Sex: Male

DRUGS (1)
  1. ACLASTA [Suspect]
     Indication: OSTEOPOROSIS
     Dosage: ONCE A YEAR
     Route: 042
     Dates: start: 20110617

REACTIONS (4)
  - Osteoporosis [Fatal]
  - Death [Fatal]
  - Spinal cord injury [Not Recovered/Not Resolved]
  - Spinal pain [Unknown]
